FAERS Safety Report 13959848 (Version 2)
Quarter: 2017Q3

REPORT INFORMATION
  Report Type: Spontaneous
  Country: FI (occurrence: FI)
  Receive Date: 20170912
  Receipt Date: 20170921
  Transmission Date: 20171128
  Serious: Yes (Hospitalization)
  Sender: FDA-Public Use
  Company Number: FI-LPDUSPRD-20171230

PATIENT
  Age: 26 Year
  Sex: Female

DRUGS (3)
  1. METATONIN ORION [Concomitant]
     Dosage: 3 MG
     Route: 048
  2. FERINJECT [Suspect]
     Active Substance: FERRIC CARBOXYMALTOSE
     Dosage: 1000 MG
     Route: 041
     Dates: start: 20170705, end: 20170705
  3. STEFAMINELLE [Concomitant]
     Dosage: UNKNOWN
     Route: 048

REACTIONS (15)
  - Flushing [Recovered/Resolved]
  - Loss of consciousness [Recovered/Resolved]
  - Dyspnoea [Recovered/Resolved]
  - Hypotension [Recovered/Resolved]
  - Headache [Recovered/Resolved]
  - Blister [Recovered/Resolved]
  - Urticaria [Recovered/Resolved]
  - Pruritus [Recovered/Resolved]
  - Tachycardia [Recovered/Resolved]
  - Speech disorder [Recovered/Resolved]
  - Rash erythematous [Recovered/Resolved]
  - Sensory loss [Recovered/Resolved]
  - Respiratory distress [Recovered/Resolved]
  - Circulatory collapse [Recovered/Resolved]
  - Throat irritation [Recovered/Resolved]

NARRATIVE: CASE EVENT DATE: 20170705
